FAERS Safety Report 7361493-3 (Version None)
Quarter: 2011Q1

REPORT INFORMATION
  Report Type: 
  Country: None (occurrence: None)
  Receive Date: 20110318
  Receipt Date: 20110307
  Transmission Date: 20110831
  Serious: Yes (Hospitalization)
  Sender: FDA-Public Use
  Company Number: PHHY2010MX46951

PATIENT
  Sex: Male
  Weight: 95 kg

DRUGS (3)
  1. KEPPRA [Concomitant]
     Dosage: 3 TAB. (500MG) DAILY
     Route: 048
  2. TRILEPTAL [Suspect]
     Indication: EPILEPSY
     Dosage: 5 TABLETS (300 MG EACH) PER DAY
     Route: 048
     Dates: start: 20081212
  3. TRILEPTAL [Suspect]
     Dosage: 5 AND HALF TABLETS (300MG) DAILY
     Dates: start: 20100901

REACTIONS (3)
  - PETIT MAL EPILEPSY [None]
  - CONVULSION [None]
  - GRAND MAL CONVULSION [None]
